FAERS Safety Report 7803084-3 (Version None)
Quarter: 2011Q4

REPORT INFORMATION
  Report Type: 
  Country: None (occurrence: None)
  Receive Date: 20111007
  Receipt Date: 20110926
  Transmission Date: 20120403
  Serious: Yes (Other)
  Sender: FDA-Public Use
  Company Number: CA-JNJFOC-20111002732

PATIENT
  Age: 46 Year
  Sex: Female

DRUGS (1)
  1. EXTRA STRENGTH TYLENOL ULTRA RELIEF MIGRAINE PAIN [Suspect]
     Indication: MIGRAINE
     Route: 048
     Dates: start: 20100101

REACTIONS (1)
  - CROHN'S DISEASE [None]
